FAERS Safety Report 8807949 (Version 1)
Quarter: 2012Q4

REPORT INFORMATION
  Report Type: 
  Country: FI (occurrence: FI)
  Receive Date: 20120925
  Receipt Date: 20120925
  Transmission Date: 20130627
  Serious: Yes (Life-Threatening)
  Sender: FDA-Public Use
  Company Number: FI-JNJFOC-20120908112

PATIENT
  Age: 13 Year
  Sex: Female

DRUGS (6)
  1. REMICADE [Suspect]
     Indication: CROHN^S DISEASE
     Route: 042
     Dates: start: 20110627, end: 20120712
  2. REMICADE [Suspect]
     Indication: JUVENILE ARTHRITIS
     Route: 042
     Dates: start: 20110627, end: 20120712
  3. TREXAN METHOTREXATE [Concomitant]
     Route: 048
  4. FOLIC ACID [Concomitant]
     Route: 065
  5. ONDANSETRON [Concomitant]
     Dosage: 4-8 mg per week before Trexan
     Route: 065
  6. PENTASA [Concomitant]
     Dosage: in the evenings
     Route: 065

REACTIONS (4)
  - Cough [Recovered/Resolved]
  - Dyspnoea [Recovered/Resolved]
  - Sensation of foreign body [Recovered/Resolved]
  - Infusion related reaction [Recovered/Resolved]
